FAERS Safety Report 8103311-1 (Version None)
Quarter: 2011Q4

REPORT INFORMATION
  Report Type: 
  Country: None (occurrence: None)
  Receive Date: 20111222
  Receipt Date: 20110913
  Transmission Date: 20120403
  Serious: Yes (Death)
  Sender: FDA-Public Use
  Company Number: UTC-010187

PATIENT
  Sex: Male

DRUGS (1)
  1. TYVASO [Suspect]
     Indication: PULMONARY ARTERIAL HYPERTENSION
     Dosage: 144 MCG (36 MCG,4 IN 1 D),INHALATION
     Route: 055
     Dates: start: 20110701

REACTIONS (1)
  - RIGHT VENTRICULAR FAILURE [None]
